FAERS Safety Report 25745482 (Version 1)
Quarter: 2025Q3

REPORT INFORMATION
  Report Type: Report from Study
  Country: EU (occurrence: EU)
  Receive Date: 20250901
  Receipt Date: 20250901
  Transmission Date: 20251020
  Serious: Yes (Other)
  Sender: AUROBINDO
  Company Number: EU-TEVA-2019-IT-1129010

PATIENT
  Age: 63 Year
  Sex: Male

DRUGS (5)
  1. MYCOPHENOLIC ACID [Suspect]
     Active Substance: MYCOPHENOLIC ACID
     Indication: Serpiginous choroiditis
     Dosage: 1.5 GRAM, ONCE A DAY (1.5 G, QD)
     Route: 062
  2. MYCOPHENOLIC ACID [Suspect]
     Active Substance: MYCOPHENOLIC ACID
     Indication: Immunosuppressant drug therapy
  3. DEXAMETHASONE [Suspect]
     Active Substance: DEXAMETHASONE
     Indication: Serpiginous choroiditis
  4. PREDNISONE [Suspect]
     Active Substance: PREDNISONE
     Indication: Serpiginous choroiditis
     Dosage: 15 MILLIGRAM, ONCE A DAY (15 MG, QD)
     Route: 062
  5. PREDNISONE [Suspect]
     Active Substance: PREDNISONE
     Dosage: 5 MILLIGRAM, ONCE A DAY (5 MG, QD)
     Route: 062

REACTIONS (4)
  - Osteoporosis [Unknown]
  - Serpiginous choroiditis [Unknown]
  - Cataract [Unknown]
  - Toxicity to various agents [Unknown]
